FAERS Safety Report 6135504-7 (Version None)
Quarter: 2009Q1

REPORT INFORMATION
  Report Type: 
  Country: None (occurrence: None)
  Receive Date: 20090327
  Receipt Date: 20090323
  Transmission Date: 20090719
  Serious: Yes (Other)
  Sender: FDA-Public Use
  Company Number: B0559778A

PATIENT
  Sex: Male
  Weight: 56 kg

DRUGS (1)
  1. RELENZA [Suspect]
     Dosage: 10MG PER DAY
     Route: 055
     Dates: start: 20090209, end: 20090210

REACTIONS (2)
  - ABNORMAL BEHAVIOUR [None]
  - AGGRESSION [None]
